FAERS Safety Report 9719438 (Version 1)
Quarter: 2013Q4

REPORT INFORMATION
  Report Type: Spontaneous
  Country: US (occurrence: US)
  Receive Date: 20131128
  Receipt Date: 20131128
  Transmission Date: 20140711
  Serious: No
  Sender: FDA-Public Use
  Company Number: US-009507513-1311USA008409

PATIENT
  Age: 24 Year
  Sex: Female
  Weight: 74.83 kg

DRUGS (3)
  1. IMPLANON [Suspect]
     Indication: CONTRACEPTION
     Dosage: 3 YEAR IMPLANT, IMPLANT IN LEFT ARM
     Route: 059
     Dates: start: 20110722
  2. SYNTHROID [Concomitant]
     Indication: HYPERTHYROIDISM
  3. NOVOLOG [Concomitant]

REACTIONS (2)
  - Polymenorrhoea [Unknown]
  - Menorrhagia [Unknown]
